FAERS Safety Report 24396860 (Version 1)
Quarter: 2024Q4

REPORT INFORMATION
  Report Type: Spontaneous
  Country: GB (occurrence: GB)
  Receive Date: 20241004
  Receipt Date: 20241004
  Transmission Date: 20250115
  Serious: Yes (Other)
  Sender: ALCON
  Company Number: None

PATIENT
  Sex: Female

DRUGS (2)
  1. TROPICAMIDE [Suspect]
     Active Substance: TROPICAMIDE
     Indication: Ophthalmological examination
     Dosage: UNK
     Route: 047
  2. POLIHEXANIDE [Concomitant]
     Active Substance: POLIHEXANIDE
     Indication: Seasonal allergy
     Dosage: UNK
     Route: 065
     Dates: start: 20240921

REACTIONS (3)
  - Periorbital swelling [Recovered/Resolved with Sequelae]
  - Dry eye [Unknown]
  - Eye pain [Unknown]

NARRATIVE: CASE EVENT DATE: 20240924
